FAERS Safety Report 24834088 (Version 1)
Quarter: 2025Q1

REPORT INFORMATION
  Report Type: Spontaneous
  Country: GB (occurrence: GB)
  Receive Date: 20250113
  Receipt Date: 20250113
  Transmission Date: 20250408
  Serious: Yes (Other)
  Sender: AUROBINDO
  Company Number: GB-AUROBINDO-AUR-APL-2025-000926

PATIENT
  Age: 62 Year
  Sex: Male

DRUGS (6)
  1. APIXABAN [Interacting]
     Active Substance: APIXABAN
     Indication: Anticoagulant therapy
     Dosage: 5 MILLIGRAM, TWO TIMES A DAY
     Route: 048
     Dates: start: 2024
  2. TAMSULOSIN HYDROCHLORIDE [Suspect]
     Active Substance: TAMSULOSIN HYDROCHLORIDE
     Indication: Benign prostatic hyperplasia
     Dosage: 400 MICROGRAM, ONCE A DAY (FROM 25TH DEC 2024 INCREASED TO 2 CAPSULES DAILY)
     Route: 048
     Dates: start: 2021, end: 202412
  3. TAMSULOSIN HYDROCHLORIDE [Suspect]
     Active Substance: TAMSULOSIN HYDROCHLORIDE
     Dosage: 400 MICROGRAM, ONCE A DAY
     Route: 048
     Dates: start: 20241231
  4. LISINOPRIL [Concomitant]
     Active Substance: LISINOPRIL
     Indication: Hypertension
     Route: 048
     Dates: start: 2005
  5. LISINOPRIL [Concomitant]
     Active Substance: LISINOPRIL
     Indication: Congenital cystic kidney disease
  6. ALLOPURINOL [Concomitant]
     Active Substance: ALLOPURINOL
     Indication: Gout
     Route: 048

REACTIONS (7)
  - Retrograde ejaculation [Not Recovered/Not Resolved]
  - Abdominal pain upper [Recovered/Resolved]
  - Micturition urgency [Recovered/Resolved]
  - Dizziness [Unknown]
  - Overdose [Recovered/Resolved]
  - Drug interaction [Not Recovered/Not Resolved]
  - Product use issue [Recovered/Resolved]

NARRATIVE: CASE EVENT DATE: 20210101
